FAERS Safety Report 7230241-X (Version None)
Quarter: 2011Q1

REPORT INFORMATION
  Report Type: 
  Country: None (occurrence: None)
  Receive Date: 20110118
  Receipt Date: 20110112
  Transmission Date: 20110831
  Serious: Yes (Other)
  Sender: FDA-Public Use
  Company Number: US-PFIZER INC-2011008462

PATIENT
  Sex: Female
  Weight: 72.562 kg

DRUGS (13)
  1. BACTRIM [Suspect]
     Indication: NASOPHARYNGITIS
  2. TRAZODONE [Concomitant]
     Indication: SLEEP DISORDER
     Dosage: UNK
  3. BACTRIM [Suspect]
     Indication: COUGH
     Dosage: UNK
     Dates: start: 20101201
  4. HYDROCODONE [Concomitant]
     Indication: PAIN
     Dosage: 10/500 MG, 3X/DAY
  5. OMEPRAZOLE [Concomitant]
     Indication: GASTROOESOPHAGEAL REFLUX DISEASE
     Dosage: 20 MG, 2X/DAY
  6. MELOXICAM [Concomitant]
     Indication: MUSCLE DISORDER
     Dosage: 15 MG, 1X/DAY
  7. LYRICA [Concomitant]
     Indication: FIBROMYALGIA
     Dosage: 200 MG, 2X/DAY
     Route: 048
  8. ATENOLOL [Concomitant]
     Indication: HYPERTENSION
     Dosage: 25 MG, 1X/DAY
  9. ALBUTEROL SULFATE [Concomitant]
     Indication: DYSPNOEA
     Dosage: UNK
  10. CHANTIX [Suspect]
     Indication: SMOKING CESSATION THERAPY
     Dosage: 0.5 MG, 1X/DAY
     Route: 048
     Dates: start: 20101218, end: 20110110
  11. VISTARIL [Concomitant]
     Indication: ANXIETY
     Dosage: 25 MG, 4X/DAY
     Route: 048
  12. CELEXA [Concomitant]
     Indication: DEPRESSION
     Dosage: 40 MG, 1X/DAY
     Route: 048
  13. DEPAKOTE [Concomitant]
     Indication: BIPOLAR DISORDER
     Dosage: 500 MG, 2X/DAY
     Route: 048

REACTIONS (4)
  - URTICARIA [None]
  - DYSSTASIA [None]
  - POLYMENORRHOEA [None]
  - ARTHRALGIA [None]
